FAERS Safety Report 7408032-6 (Version None)
Quarter: 2011Q2

REPORT INFORMATION
  Report Type: 
  Country: None (occurrence: None)
  Receive Date: 20110412
  Receipt Date: 20110331
  Transmission Date: 20111010
  Serious: Yes (Hospitalization)
  Sender: FDA-Public Use
  Company Number: FR-SHIRE-CQT2-2010-00017

PATIENT
  Age: 85 Year
  Sex: Female
  Weight: 70 kg

DRUGS (24)
  1. ANAGRELIDE HCL [Suspect]
     Indication: ESSENTIAL THROMBOCYTHAEMIA
     Dosage: 2 MG DAILY
     Route: 048
     Dates: start: 20081223, end: 20090516
  2. FLUINDIONE [Suspect]
     Dosage: 5 MG, 1X/DAY:QD
     Route: 048
     Dates: start: 20090610
  3. PIPOBROMAN [Suspect]
     Dosage: 525 MG PER WEEK
     Route: 048
     Dates: start: 20070910, end: 20071116
  4. ANASTROZOLE [Concomitant]
     Indication: BREAST CANCER
     Dosage: 1 MG, 1X/DAY:QD
     Route: 048
     Dates: start: 20070828
  5. PIPOBROMAN [Suspect]
     Dosage: 400 MG PER WEEK
     Route: 048
     Dates: start: 20070301, end: 20070710
  6. ASPIRIN [Suspect]
     Indication: ESSENTIAL THROMBOCYTHAEMIA
     Dosage: 100 MG, 1X/DAY:QD
     Route: 048
     Dates: start: 19990627, end: 20090520
  7. ANAGRELIDE HCL [Suspect]
     Dosage: 2.5 MG DAILY
     Route: 048
     Dates: start: 20080611, end: 20081222
  8. FLUINDIONE [Suspect]
     Indication: ESSENTIAL THROMBOCYTHAEMIA
     Dosage: 10 MG, 1X/DAY:QD
     Route: 048
     Dates: start: 20090516, end: 20090602
  9. FLECAINE [Concomitant]
     Indication: SUPRAVENTRICULAR EXTRASYSTOLES
  10. PIPOBROMAN [Suspect]
     Dosage: 475 MG PER WEEK
     Route: 048
     Dates: start: 20070710, end: 20070910
  11. PIPOBROMAN [Suspect]
     Dosage: 700 MG PER WEEK
     Route: 048
     Dates: start: 20071116, end: 20080526
  12. ANAGRELIDE HCL [Suspect]
     Dosage: 1.5 MG DAILY
     Route: 048
     Dates: start: 20080411, end: 20080511
  13. PIPOBROMAN [Suspect]
     Dosage: 525 MG PER WEEK
     Route: 048
     Dates: start: 20080526, end: 20080922
  14. ANAGRELIDE HCL [Suspect]
     Dosage: .5 MG, 1X/DAY:QD
     Route: 048
     Dates: start: 20080211, end: 20080311
  15. PIPOBROMAN [Suspect]
     Dosage: 25 MG OR 50 MG DAILY
     Route: 048
     Dates: start: 19980803, end: 19990201
  16. FLECAINE [Concomitant]
     Indication: VENTRICULAR EXTRASYSTOLES
     Dosage: 100 MG, UNKNOWN
     Route: 048
     Dates: end: 20090516
  17. ANAGRELIDE HCL [Suspect]
     Dosage: 1 MG DAILY
     Route: 048
     Dates: start: 20080311, end: 20080411
  18. PIPOBROMAN [Suspect]
     Indication: ESSENTIAL THROMBOCYTHAEMIA
     Dosage: 37.5 MG EVERY OTHER DAY
     Route: 048
     Dates: start: 20090516, end: 20090702
  19. ANAGRELIDE HCL [Suspect]
     Dosage: 2 MG DAILY
     Route: 048
     Dates: start: 20080511, end: 20080611
  20. PIPOBROMAN [Suspect]
     Dosage: 325 MG PER WEEK
     Route: 048
     Dates: start: 19990601, end: 20070301
  21. PIPOBROMAN [Suspect]
     Dosage: 175 MG PER WEEK
     Route: 048
     Dates: start: 20080923, end: 20081222
  22. PIPOBROMAN [Suspect]
     Dosage: 25.0 MG, EVERY TWO DAYS
     Route: 048
     Dates: start: 20090703
  23. HYDROXYUREA [Suspect]
     Indication: ESSENTIAL THROMBOCYTHAEMIA
     Dosage: 1000 MG OR 1500 MG DAILY
     Route: 048
     Dates: start: 19960620, end: 19980618
  24. ARANESP [Concomitant]
     Indication: ANAEMIA
     Dosage: 150 UG EVERY TWO WEEKS
     Route: 058
     Dates: start: 20081222

REACTIONS (1)
  - OVERDOSE [None]
